FAERS Safety Report 21896486 (Version 1)
Quarter: 2023Q1

REPORT INFORMATION
  Report Type: Spontaneous
  Country: US (occurrence: US)
  Receive Date: 20230123
  Receipt Date: 20230123
  Transmission Date: 20230417
  Serious: No
  Sender: FDA-Public Use
  Company Number: US-BIOGEN-2023BI01182660

PATIENT
  Sex: Female

DRUGS (8)
  1. AVONEX [Suspect]
     Active Substance: INTERFERON BETA-1A
     Indication: Multiple sclerosis
     Dosage: INJECT 30 MCG ( 1 PRE-FILLED SYRINGE  ) INTRAMUSCULARLY INTO THE SHOULDER, THIGH, OR BUTTOCKS EVE...
     Route: 050
  2. AVONEX [Suspect]
     Active Substance: INTERFERON BETA-1A
  3. AVONEX [Suspect]
     Active Substance: INTERFERON BETA-1A
  4. AVONEX [Suspect]
     Active Substance: INTERFERON BETA-1A
  5. OXYCODONE HYDROCHLORIDE [Concomitant]
     Active Substance: OXYCODONE HYDROCHLORIDE
     Route: 050
  6. BUPROPION HYDROCHLORIDE [Concomitant]
     Active Substance: BUPROPION HYDROCHLORIDE
     Route: 050
  7. LORAZEPAM [Concomitant]
     Active Substance: LORAZEPAM
     Route: 050
  8. LINZESS [Concomitant]
     Active Substance: LINACLOTIDE
     Route: 050

REACTIONS (2)
  - Joint injury [Unknown]
  - Arthralgia [Unknown]
